FAERS Safety Report 9636053 (Version 1)
Quarter: 2013Q4

REPORT INFORMATION
  Report Type: Spontaneous
  Country: CN (occurrence: CN)
  Receive Date: 20131021
  Receipt Date: 20131021
  Transmission Date: 20140711
  Serious: Yes (Hospitalization, Other)
  Sender: FDA-Public Use
  Company Number: CN-BAYER-2013-123846

PATIENT
  Age: 47 Year
  Sex: Male

DRUGS (1)
  1. ACETYLSALICYLIC ACID({=100 MG) [Suspect]
     Indication: CORONARY ARTERY DISEASE
     Dosage: UNK
     Route: 048

REACTIONS (6)
  - Gastritis erosive [Recovered/Resolved]
  - Small intestine ulcer [Recovered/Resolved]
  - Ileal ulcer [Recovered/Resolved]
  - Vitamin B12 deficiency [Recovering/Resolving]
  - Gastrointestinal haemorrhage [Recovered/Resolved]
  - Anaemia megaloblastic [Recovering/Resolving]
